FAERS Safety Report 9296166 (Version 1)
Quarter: 2013Q2

REPORT INFORMATION
  Report Type: Report from Study
  Country: BR (occurrence: BR)
  Receive Date: 20130517
  Receipt Date: 20130517
  Transmission Date: 20140414
  Serious: Yes (Other)
  Sender: FDA-Public Use
  Company Number: BR-ACTELION-A-CH2013-83219

PATIENT
  Age: 65 Year
  Sex: Female

DRUGS (3)
  1. TRACLEER [Suspect]
     Indication: PULMONARY ARTERIAL HYPERTENSION
     Dosage: 125 MG, BID
     Route: 048
     Dates: start: 20091005
  2. WARFARIN [Concomitant]
  3. FUROSEMIDE [Concomitant]

REACTIONS (2)
  - Bipolar disorder [Unknown]
  - Fatigue [Unknown]
